FAERS Safety Report 7241178-4 (Version None)
Quarter: 2011Q1

REPORT INFORMATION
  Report Type: 
  Country: None (occurrence: None)
  Receive Date: 20110119
  Receipt Date: 20110119
  Transmission Date: 20110831
  Serious: No
  Sender: FDA-Public Use
  Company Number: None

PATIENT
  Age: 11 Year
  Sex: Male
  Weight: 59.1 kg

DRUGS (2)
  1. CLONIDINE PATCHES -1 [Suspect]
     Indication: ATTENTION DEFICIT/HYPERACTIVITY DISORDER
     Dosage: 1 PATCH EVERY 6 DAYS APPLY TO SKIN
     Dates: start: 20100501, end: 20100601
  2. CLONIDINE PATCHES 1 UNKNOWN. PT FILLED TWO PRESCRIPTIONS. [Suspect]
     Dosage: PATCH EVERY 6 DAYS APPLY ON SKIN

REACTIONS (2)
  - PRODUCT ADHESION ISSUE [None]
  - THERAPEUTIC RESPONSE UNEXPECTED WITH DRUG SUBSTITUTION [None]
